FAERS Safety Report 25849227 (Version 1)
Quarter: 2025Q3

REPORT INFORMATION
  Report Type: Spontaneous
  Country: A1 (occurrence: A1)
  Receive Date: 20250925
  Receipt Date: 20250925
  Transmission Date: 20251021
  Serious: No
  Sender: ARMSTRONG PHARMACEUTICALS, INC.
  Company Number: A1-Armstrong Pharmaceuticals, Inc.-2185327

PATIENT

DRUGS (1)
  1. PRIMATENE MIST [Suspect]
     Active Substance: EPINEPHRINE
     Indication: Asthma

REACTIONS (7)
  - Dyspnoea [Recovering/Resolving]
  - Back pain [Recovering/Resolving]
  - Chest pain [Recovering/Resolving]
  - Urticaria [Recovering/Resolving]
  - Nervousness [Recovering/Resolving]
  - Headache [Recovering/Resolving]
  - Vomiting [Recovering/Resolving]
